FAERS Safety Report 7378765-9 (Version None)
Quarter: 2011Q1

REPORT INFORMATION
  Report Type: 
  Country: None (occurrence: None)
  Receive Date: 20110328
  Receipt Date: 20110322
  Transmission Date: 20110831
  Serious: Yes (Death)
  Sender: FDA-Public Use
  Company Number: SE-BRISTOL-MYERS SQUIBB COMPANY-15623556

PATIENT
  Age: 74 Year
  Sex: Female

DRUGS (1)
  1. PARAPLATIN [Suspect]
     Indication: OVARIAN CANCER
     Dates: end: 20100326

REACTIONS (1)
  - ANAPHYLACTIC SHOCK [None]
